FAERS Safety Report 9153623 (Version 6)
Quarter: 2013Q3

REPORT INFORMATION
  Report Type: Report from Study
  Country: DE (occurrence: DE)
  Receive Date: 20130311
  Receipt Date: 20130816
  Transmission Date: 20140515
  Serious: Yes (Death, Life-Threatening, Hospitalization, Other)
  Sender: FDA-Public Use
  Company Number: PHHY2013DE023381

PATIENT
  Sex: Female
  Weight: 91 kg

DRUGS (3)
  1. AFINITOR [Suspect]
     Indication: BREAST CANCER METASTATIC
     Dosage: 5 MG, QD
     Route: 048
     Dates: start: 20130116, end: 20130309
  2. EXEMESTANE [Concomitant]
     Indication: BREAST CANCER METASTATIC
     Dosage: 25 MG, QD
     Route: 048
     Dates: start: 20130116, end: 20130309
  3. BISPHOSPHONATES [Concomitant]

REACTIONS (5)
  - General physical health deterioration [Fatal]
  - Stomatitis [Fatal]
  - Hepatic failure [Fatal]
  - Interstitial lung disease [Fatal]
  - Respiratory failure [Fatal]
